FAERS Safety Report 5015228-X (Version None)
Quarter: 2006Q2

REPORT INFORMATION
  Report Type: 
  Country: None (occurrence: None)
  Receive Date: 20060425
  Receipt Date: 20060316
  Transmission Date: 20061013
  Serious: No
  Sender: FDA-Public Use
  Company Number: 223452

PATIENT
  Age: 10 Year
  Sex: Female
  Weight: 53 kg

DRUGS (5)
  1. XOLAIR [Suspect]
     Dosage: 375 MG, Q2W, SUBCUTANEOUS
     Route: 058
     Dates: start: 20060120
  2. XOLAIR [Suspect]
  3. ADVAIR DISKUS 100/50 [Concomitant]
  4. NASACORT [Concomitant]
  5. SINGULAIR [Concomitant]

REACTIONS (1)
  - MYALGIA [None]
